FAERS Safety Report 4548544-6 (Version None)
Quarter: 2005Q1

REPORT INFORMATION
  Report Type: 
  Country: None (occurrence: None)
  Receive Date: 20050105
  Receipt Date: 20050105
  Transmission Date: 20050727
  Serious: Yes (Life-Threatening)
  Sender: FDA-Public Use
  Company Number: None

PATIENT
  Age: 62 Year
  Sex: Male
  Weight: 79.3795 kg

DRUGS (1)
  1. MOTRIN [Suspect]
     Indication: ARTHRALGIA

REACTIONS (2)
  - BLOOD PRESSURE INCREASED [None]
  - PLATELET COUNT DECREASED [None]
